FAERS Safety Report 5369907-5 (Version None)
Quarter: 2007Q2

REPORT INFORMATION
  Report Type: 
  Country: None (occurrence: None)
  Receive Date: 20070620
  Receipt Date: 20070608
  Transmission Date: 20071010
  Serious: Yes (Death, Hospitalization)
  Sender: FDA-Public Use
  Company Number: B0474195A

PATIENT
  Age: 44 Year
  Sex: Male
  Weight: 74.8435 kg

DRUGS (9)
  1. PAROXETINE HCL [Suspect]
     Dosage: 20 MG, PER DAY; ORAL
     Route: 048
  2. FLUPHENAZINE [Suspect]
     Dosage: 40 MG PER DAY; ORAL
     Route: 048
  3. HALOPERIDOL [Suspect]
     Dosage: 12 MG PER DAY; ORAL
     Route: 048
  4. OLANZAPINE [Suspect]
     Dosage: 30 MG PER DAY; ORAL
     Route: 048
  5. FLUPHENAZINE   INJECTION [Suspect]
     Dosage: 25 MG, INTRAMUSCULAR
     Route: 030
  6. ALPRAZOLAM [Concomitant]
  7. BIPERIDEN HYDROCHLORIDE TAB [Concomitant]
  8. BROMAZEPAM [Concomitant]
  9. DIAZEPAM [Concomitant]

REACTIONS (23)
  - ABDOMINAL PAIN [None]
  - BLOOD BICARBONATE DECREASED [None]
  - BLOOD CHLORIDE DECREASED [None]
  - BRADYPNOEA [None]
  - BRAIN OEDEMA [None]
  - CARDIAC ARREST [None]
  - COMA [None]
  - DISORIENTATION [None]
  - GENERAL PHYSICAL HEALTH DETERIORATION [None]
  - HYPERGLYCAEMIA [None]
  - HYPONATRAEMIA [None]
  - HYPOTENSION [None]
  - HYPOVENTILATION [None]
  - KETONURIA [None]
  - LOSS OF CONSCIOUSNESS [None]
  - NAUSEA [None]
  - OEDEMA [None]
  - OXYGEN SATURATION DECREASED [None]
  - PANCREATITIS HAEMORRHAGIC [None]
  - PCO2 DECREASED [None]
  - PO2 DECREASED [None]
  - PROSTRATION [None]
  - VERTIGO [None]
